FAERS Safety Report 7279329-8 (Version None)
Quarter: 2011Q1

REPORT INFORMATION
  Report Type: 
  Country: None (occurrence: None)
  Receive Date: 20110207
  Receipt Date: 20110128
  Transmission Date: 20110831
  Serious: Yes (Life-Threatening, Hospitalization, Disabling, Other)
  Sender: FDA-Public Use
  Company Number: US-MERCK-1004USA00284

PATIENT
  Age: 45 Year
  Sex: Male
  Weight: 89 kg

DRUGS (6)
  1. SYNTHROID [Concomitant]
     Indication: THYROID DISORDER
     Route: 065
     Dates: start: 19850101
  2. FOSAMAX [Suspect]
     Route: 048
     Dates: end: 20070101
  3. CORTICOSTEROIDS (UNSPECIFIED) [Suspect]
     Route: 065
  4. FOSAMAX [Suspect]
     Indication: OSTEOPOROSIS
     Route: 048
     Dates: start: 20040804, end: 20061001
  5. FOSAMAX [Suspect]
     Indication: OSTEOPENIA
     Route: 048
     Dates: start: 20040804, end: 20061001
  6. FOSAMAX [Suspect]
     Route: 048
     Dates: end: 20070101

REACTIONS (68)
  - SPINAL OSTEOARTHRITIS [None]
  - ALTERED STATE OF CONSCIOUSNESS [None]
  - BLOOD POTASSIUM DECREASED [None]
  - BACK PAIN [None]
  - HYPOACUSIS [None]
  - CANDIDIASIS [None]
  - OSTEONECROSIS OF JAW [None]
  - CONVULSION [None]
  - DRUG DEPENDENCE [None]
  - MUSCLE SPASMS [None]
  - PALPITATIONS [None]
  - NAUSEA [None]
  - URINE ABNORMALITY [None]
  - MYALGIA [None]
  - HYPOGLYCAEMIA [None]
  - ORAL INFECTION [None]
  - GLOMERULONEPHRITIS MEMBRANOUS [None]
  - ASTHMA [None]
  - OSTEONECROSIS [None]
  - OSTEOMYELITIS [None]
  - NECK MASS [None]
  - BASEDOW'S DISEASE [None]
  - PATELLOFEMORAL PAIN SYNDROME [None]
  - PRURITUS [None]
  - PHARYNGITIS STREPTOCOCCAL [None]
  - VITAMIN D ABNORMAL [None]
  - TONGUE ULCERATION [None]
  - OEDEMA PERIPHERAL [None]
  - SWELLING [None]
  - INSOMNIA [None]
  - HEART RATE INCREASED [None]
  - GINGIVAL ULCERATION [None]
  - ARTERIAL DISORDER [None]
  - OSTEOARTHRITIS [None]
  - PERIARTHRITIS [None]
  - DISABILITY [None]
  - DENTAL CARIES [None]
  - SYNOVIAL CYST [None]
  - ORAL DISORDER [None]
  - GINGIVITIS [None]
  - LIGAMENT RUPTURE [None]
  - MELAENA [None]
  - TENODESIS [None]
  - ANXIETY [None]
  - EXOSTOSIS [None]
  - DYSPNOEA EXERTIONAL [None]
  - DECREASED APPETITE [None]
  - MUSCULOSKELETAL PAIN [None]
  - SENSITIVITY OF TEETH [None]
  - RESPIRATORY TRACT CONGESTION [None]
  - TENDON DISORDER [None]
  - LYMPHADENOPATHY [None]
  - LIVER FUNCTION TEST ABNORMAL [None]
  - FATIGUE [None]
  - GASTROINTESTINAL HAEMORRHAGE [None]
  - DEPRESSION [None]
  - PAIN IN EXTREMITY [None]
  - VOCAL CORD DISORDER [None]
  - BLOOD TESTOSTERONE DECREASED [None]
  - BLOOD GLUCOSE DECREASED [None]
  - ARTHROPATHY [None]
  - DIARRHOEA [None]
  - VOMITING [None]
  - SINUSITIS [None]
  - NASAL MUCOSAL DISORDER [None]
  - ORAL TORUS [None]
  - SERUM FERRITIN INCREASED [None]
  - BRONCHITIS [None]
